FAERS Safety Report 4647320-3 (Version None)
Quarter: 2005Q2

REPORT INFORMATION
  Report Type: 
  Country: None (occurrence: None)
  Receive Date: 20050426
  Receipt Date: 20050412
  Transmission Date: 20051028
  Serious: Yes (Hospitalization, Other)
  Sender: FDA-Public Use
  Company Number: 2005BI001135

PATIENT
  Sex: Female
  Weight: 70.3075 kg

DRUGS (9)
  1. AVONEX [Suspect]
     Indication: MULTIPLE SCLEROSIS
     Dosage: 30 UG; QW; IM
     Route: 030
     Dates: start: 19980101, end: 20030101
  2. AVONEX [Suspect]
     Indication: MULTIPLE SCLEROSIS
     Dosage: 30 UG; QW; IM
     Route: 030
     Dates: start: 20030101
  3. PREMARIN [Concomitant]
  4. ZOLOFT [Concomitant]
  5. URSODIOL [Concomitant]
  6. SINGULAIR [Concomitant]
  7. BACLOFEN [Concomitant]
  8. LAXATIVES [Concomitant]
  9. MULTIPLE VITAMIN [Concomitant]

REACTIONS (7)
  - ASTHENIA [None]
  - BALANCE DISORDER [None]
  - CHOLANGITIS SCLEROSING [None]
  - FALL [None]
  - MUSCLE SPASMS [None]
  - OTORRHOEA [None]
  - SKIN LACERATION [None]
